FAERS Safety Report 5245003-2 (Version None)
Quarter: 2007Q1

REPORT INFORMATION
  Report Type: 
  Country: None (occurrence: None)
  Receive Date: 20070221
  Receipt Date: 20070221
  Transmission Date: 20070707
  Serious: No
  Sender: FDA-Public Use
  Company Number: None

PATIENT
  Sex: Female
  Weight: 88.4514 kg

DRUGS (2)
  1. PROZAC [Suspect]
     Indication: ANXIETY
     Dosage: 1 20 MG PILL  DAILY PO
     Route: 048
     Dates: start: 19950701, end: 20061001
  2. PROZAC [Suspect]
     Indication: EMOTIONAL DISTRESS
     Dosage: 1 20 MG PILL  DAILY PO
     Route: 048
     Dates: start: 19950701, end: 20061001

REACTIONS (4)
  - ABNORMAL DREAMS [None]
  - AFFECT LABILITY [None]
  - PHARMACEUTICAL PRODUCT COUNTERFEIT [None]
  - POOR QUALITY DRUG ADMINISTERED [None]
